FAERS Safety Report 25318141 (Version 1)
Quarter: 2025Q2

REPORT INFORMATION
  Report Type: Other
  Country: US (occurrence: US)
  Receive Date: 20250515
  Receipt Date: 20250515
  Transmission Date: 20250717
  Serious: No
  Sender: INNOGENIX, LLC
  Company Number: US-Innogenix, LLC-2176703

PATIENT
  Sex: Male

DRUGS (3)
  1. BACLOFEN [Suspect]
     Active Substance: BACLOFEN
     Indication: Product used for unknown indication
  2. METOCLOPRAMIDE [Suspect]
     Active Substance: METOCLOPRAMIDE
  3. CHLORPROMAZINE [Suspect]
     Active Substance: CHLORPROMAZINE

REACTIONS (2)
  - Impaired quality of life [Unknown]
  - Therapy non-responder [Unknown]
